FAERS Safety Report 20054198 (Version 1)
Quarter: 2021Q4

REPORT INFORMATION
  Report Type: Spontaneous
  Country: US (occurrence: US)
  Receive Date: 20211110
  Receipt Date: 20211110
  Transmission Date: 20220303
  Serious: Yes (Hospitalization, Other)
  Sender: FDA-Public Use
  Company Number: US-ALXN-A202111996

PATIENT
  Sex: Male

DRUGS (1)
  1. SOLIRIS [Suspect]
     Active Substance: ECULIZUMAB
     Indication: Atypical haemolytic uraemic syndrome
     Dosage: UNK
     Route: 065

REACTIONS (10)
  - Internal haemorrhage [Unknown]
  - Monoplegia [Unknown]
  - Cataract [Unknown]
  - Malaise [Unknown]
  - Renal disorder [Unknown]
  - Eye infection [Unknown]
  - Visual impairment [Unknown]
  - Product dose omission issue [Unknown]
  - Skin ulcer [Unknown]
  - Blood test abnormal [Unknown]
